FAERS Safety Report 9217634 (Version 1)
Quarter: 2013Q2

REPORT INFORMATION
  Report Type: Report from Study
  Country: US (occurrence: US)
  Receive Date: 20130408
  Receipt Date: 20130408
  Transmission Date: 20140414
  Serious: Yes (Other)
  Sender: FDA-Public Use
  Company Number: US-PFIZER INC-2010049244

PATIENT
  Age: 62 Year
  Sex: Female
  Weight: 77 kg

DRUGS (12)
  1. LYRICA [Suspect]
     Indication: FIBROMYALGIA
     Dosage: 75 MG, 2X/DAY
     Route: 048
     Dates: start: 2009, end: 201004
  2. LYRICA [Suspect]
     Dosage: 75 MG, 2X/DAY
     Route: 048
     Dates: end: 201210
  3. LISINOPRIL [Concomitant]
     Dosage: UNK
  4. GEMFIBROZIL [Concomitant]
     Dosage: UNK
  5. ZOCOR [Concomitant]
     Dosage: UNK
  6. NORVASC [Concomitant]
     Dosage: UNK
  7. METFORMIN [Concomitant]
     Dosage: 850 MG, UNK
  8. NEXIUM [Concomitant]
     Dosage: UNK
  9. FISH OIL [Concomitant]
     Dosage: UNK
  10. VITAMIN D [Concomitant]
     Dosage: UNK
  11. VITAMIN A [Concomitant]
     Dosage: UNK
  12. ALLOPURINOL [Concomitant]
     Dosage: 300 MG, 1X/DAY

REACTIONS (7)
  - Depression [Recovered/Resolved]
  - Gallbladder disorder [Unknown]
  - Chills [Recovered/Resolved]
  - Nausea [Recovered/Resolved]
  - Diarrhoea [Recovered/Resolved]
  - Malaise [Recovered/Resolved]
  - Activities of daily living impaired [Recovered/Resolved]
